FAERS Safety Report 12271247 (Version 1)
Quarter: 2016Q2

REPORT INFORMATION
  Report Type: Spontaneous
  Country: US (occurrence: US)
  Receive Date: 20160415
  Receipt Date: 20160415
  Transmission Date: 20160815
  Serious: No
  Sender: FDA-Public Use
  Company Number: US-GLAXOSMITHKLINE-US2016GSK044478

PATIENT
  Age: 26 Year
  Sex: Female

DRUGS (4)
  1. PROMETHAZINE [Concomitant]
     Active Substance: PROMETHAZINE\PROMETHAZINE HYDROCHLORIDE
  2. ZANTAC [Suspect]
     Active Substance: RANITIDINE HYDROCHLORIDE
     Indication: GASTROOESOPHAGEAL REFLUX DISEASE
     Dosage: 150 MG, QD
     Route: 048
     Dates: start: 20151212
  3. IRON [Concomitant]
     Active Substance: IRON
  4. ZANTAC [Suspect]
     Active Substance: RANITIDINE HYDROCHLORIDE
     Indication: NAUSEA
     Dosage: 1 DF, BID
     Route: 048

REACTIONS (7)
  - Malaise [Recovered/Resolved]
  - Laboratory test abnormal [Unknown]
  - Live birth [Unknown]
  - Exposure during pregnancy [Unknown]
  - Drug screen positive [Unknown]
  - Off label use [Unknown]
  - Drug screen [Unknown]

NARRATIVE: CASE EVENT DATE: 20151212
